FAERS Safety Report 25250270 (Version 1)
Quarter: 2025Q2

REPORT INFORMATION
  Report Type: Spontaneous
  Country: US (occurrence: None)
  Receive Date: 20250428
  Receipt Date: 20250428
  Transmission Date: 20250717
  Serious: Yes (Hospitalization)
  Sender: FDA-CTU
  Company Number: None

PATIENT
  Age: 74 Year
  Sex: Female
  Weight: 71 kg

DRUGS (1)
  1. LECANEMAB [Suspect]
     Active Substance: LECANEMAB

REACTIONS (6)
  - Confusional state [None]
  - Hallucination [None]
  - Aphasia [None]
  - Mental status changes [None]
  - Amyloid related imaging abnormality-microhaemorrhages and haemosiderin deposits [None]
  - Amyloid related imaging abnormality-oedema/effusion [None]

NARRATIVE: CASE EVENT DATE: 20250427
